FAERS Safety Report 5077301-X (Version None)
Quarter: 2006Q3

REPORT INFORMATION
  Report Type: 
  Country: None (occurrence: None)
  Receive Date: 20060810
  Receipt Date: 20060120
  Transmission Date: 20061208
  Serious: No
  Sender: FDA-Public Use
  Company Number: US-GLAXOSMITHKLINE-A0590299A

PATIENT
  Age: 39 Year
  Sex: Female

DRUGS (7)
  1. PAXIL [Suspect]
     Indication: OBSESSIVE-COMPULSIVE DISORDER
     Dosage: 50MG PER DAY
     Route: 048
     Dates: start: 20050620
  2. PAXIL CR [Suspect]
     Indication: DRUG USE FOR UNKNOWN INDICATION
     Route: 048
  3. METFORMIN [Concomitant]
  4. ATENOLOL [Concomitant]
  5. IRON [Concomitant]
  6. LISINOPRIL [Concomitant]
  7. CIPRO [Concomitant]

REACTIONS (3)
  - BACK PAIN [None]
  - PAIN IN EXTREMITY [None]
  - URINARY TRACT INFECTION [None]
